FAERS Safety Report 12784964 (Version 1)
Quarter: 2016Q3

REPORT INFORMATION
  Report Type: Spontaneous
  Country: US (occurrence: US)
  Receive Date: 20160927
  Receipt Date: 20160927
  Transmission Date: 20161109
  Serious: No
  Sender: FDA-Public Use
  Company Number: US-IGSA-GTI003547

PATIENT
  Age: 4 Year
  Sex: Male
  Weight: 17 kg

DRUGS (4)
  1. PROLASTIN-C [Suspect]
     Active Substance: .ALPHA.1-PROTEINASE INHIBITOR HUMAN
     Indication: DIABETES MELLITUS
     Route: 042
     Dates: start: 20150920, end: 20150920
  2. PROLASTIN-C [Suspect]
     Active Substance: .ALPHA.1-PROTEINASE INHIBITOR HUMAN
     Indication: DIABETES MELLITUS
     Route: 042
     Dates: start: 20150903
  3. DIPHENHYDRAMINE HYDROCHLORIDE W/PHENYLEPHRINE [Concomitant]
     Indication: PREMEDICATION
     Route: 048
     Dates: start: 20150920, end: 20150920
  4. DIPHENHYDRAMINE. [Concomitant]
     Active Substance: DIPHENHYDRAMINE
     Indication: PREMEDICATION
     Dates: start: 20150903, end: 20150903

REACTIONS (1)
  - Throat irritation [Recovered/Resolved]

NARRATIVE: CASE EVENT DATE: 20150920
